FAERS Safety Report 6710211-8 (Version None)
Quarter: 2010Q2

REPORT INFORMATION
  Report Type: 
  Country: None (occurrence: None)
  Receive Date: 20100430
  Receipt Date: 20100427
  Transmission Date: 20101027
  Serious: Yes (Hospitalization, Disabling, Other)
  Sender: FDA-Public Use
  Company Number: JHP201000143

PATIENT
  Age: 26 Year
  Sex: Female

DRUGS (2)
  1. TIGAN [Suspect]
     Indication: GASTROENTERITIS
     Dosage: 200 MG, SINGLE, INTRAMUSCULAR
     Route: 030
  2. TIGAN [Suspect]
     Indication: VOMITING
     Dosage: 200 MG, SINGLE, INTRAMUSCULAR
     Route: 030

REACTIONS (4)
  - ARM AMPUTATION [None]
  - COLD SWEAT [None]
  - LOSS OF CONSCIOUSNESS [None]
  - ROAD TRAFFIC ACCIDENT [None]
